FAERS Safety Report 21470781 (Version 1)
Quarter: 2022Q4

REPORT INFORMATION
  Report Type: Report from Study
  Country: US (occurrence: US)
  Receive Date: 20221018
  Receipt Date: 20221018
  Transmission Date: 20230113
  Serious: No
  Sender: FDA-Public Use
  Company Number: US-ABBVIE-4145533

PATIENT
  Sex: Male

DRUGS (1)
  1. HUMIRA [Suspect]
     Active Substance: ADALIMUMAB
     Indication: Colitis ulcerative
     Dosage: 40 MILLIGRAM.
     Route: 058
     Dates: start: 20211013

REACTIONS (3)
  - Frequent bowel movements [Recovering/Resolving]
  - Arthralgia [Unknown]
  - Flatulence [Unknown]
